FAERS Safety Report 11050336 (Version 2)
Quarter: 2015Q2

REPORT INFORMATION
  Report Type: Spontaneous
  Country: BR (occurrence: BR)
  Receive Date: 20150421
  Receipt Date: 20150428
  Transmission Date: 20150821
  Serious: Yes (Hospitalization, Other)
  Sender: FDA-Public Use
  Company Number: BR-PFIZER INC-2015125319

PATIENT
  Age: 71 Year
  Sex: Female
  Weight: 98 kg

DRUGS (6)
  1. MYTEDOM [Interacting]
     Active Substance: METHADONE HYDROCHLORIDE
     Indication: ANALGESIC THERAPY
     Dosage: 5 MG, 3X/DAY (EVERY 8 HOURS)
     Route: 048
     Dates: start: 20150311, end: 20150401
  2. MYTEDOM [Interacting]
     Active Substance: METHADONE HYDROCHLORIDE
     Indication: ANALGESIC THERAPY
     Dosage: 1 MG, AS NEEDED
     Route: 042
     Dates: start: 20150311, end: 20150328
  3. AMITRIPTYLINE [Interacting]
     Active Substance: AMITRIPTYLINE
     Indication: ANALGESIC THERAPY
     Dosage: 12.5 MG, DAILY
     Route: 048
     Dates: start: 20150310, end: 20150330
  4. TOPERMA [Suspect]
     Active Substance: LIDOCAINE
     Indication: ANALGESIC THERAPY
     Dosage: 3 DF, 1X/DAY
     Route: 061
     Dates: start: 20150311, end: 20150404
  5. LYRICA [Interacting]
     Active Substance: PREGABALIN
     Indication: NEURALGIA
  6. LYRICA [Interacting]
     Active Substance: PREGABALIN
     Indication: ANALGESIC THERAPY
     Dosage: 75 MG, DAILY
     Dates: start: 20150317, end: 20150411

REACTIONS (7)
  - Drug interaction [Unknown]
  - Depressed level of consciousness [Recovered/Resolved]
  - Pulmonary embolism [Unknown]
  - Hypotension [Recovering/Resolving]
  - Oxygen saturation decreased [Recovered/Resolved]
  - Cerebrospinal fistula [Unknown]
  - Spinal disorder [Unknown]
